FAERS Safety Report 4482501-3 (Version None)
Quarter: 2004Q4

REPORT INFORMATION
  Report Type: 
  Country: None (occurrence: None)
  Receive Date: 20041022
  Receipt Date: 20041014
  Transmission Date: 20050328
  Serious: Yes (Death, Other)
  Sender: FDA-Public Use
  Company Number: JP-MERCK-0410USA02787

PATIENT
  Age: 51 Year
  Sex: Female
  Weight: 43 kg

DRUGS (9)
  1. PRIMAXIN [Suspect]
     Indication: INFECTION PROPHYLAXIS
     Route: 041
     Dates: start: 20020903, end: 20020911
  2. PENTAMIDINE ISETIONATE [Concomitant]
     Indication: PNEUMOCYSTIS CARINII PNEUMONIA
     Route: 041
     Dates: start: 20020903, end: 20020917
  3. GLOBULIN, IMMUNE [Concomitant]
     Route: 030
     Dates: start: 20020903, end: 20020905
  4. METHYLPREDNISOLONE SODIUM SUCCINATE [Concomitant]
     Indication: INTERSTITIAL LUNG DISEASE
     Route: 051
     Dates: start: 20020908, end: 20020917
  5. FLUCONAZOLE [Concomitant]
     Indication: INFECTION PROPHYLAXIS
     Route: 042
     Dates: start: 20020904, end: 20020917
  6. MINOCYCLINE HYDROCHLORIDE [Concomitant]
     Indication: PNEUMONIA PRIMARY ATYPICAL
     Route: 065
     Dates: start: 20020908, end: 20020917
  7. CIPROFLOXACIN [Concomitant]
     Route: 065
     Dates: start: 20020911, end: 20020917
  8. [THERAPY UNSPECIFIED] [Concomitant]
     Indication: PLEURAL EFFUSION
     Route: 065
     Dates: start: 20020906
  9. [THERAPY UNSPECIFIED] [Concomitant]
     Indication: VENTRICULAR FAILURE
     Route: 065
     Dates: start: 20020906

REACTIONS (10)
  - ATELECTASIS [None]
  - BRONCHOPULMONARY ASPERGILLOSIS [None]
  - CARDIAC FAILURE [None]
  - CHEST X-RAY ABNORMAL [None]
  - DISEASE PROGRESSION [None]
  - HAEMODIALYSIS [None]
  - INTERSTITIAL LUNG DISEASE [None]
  - PLEURAL EFFUSION [None]
  - RENAL FAILURE [None]
  - RENAL FAILURE ACUTE [None]
